FAERS Safety Report 9812655 (Version 1)
Quarter: 2014Q1

REPORT INFORMATION
  Report Type: Spontaneous
  Country: FR (occurrence: FR)
  Receive Date: 20140113
  Receipt Date: 20140113
  Transmission Date: 20141002
  Serious: Yes (Hospitalization)
  Sender: FDA-Public Use
  Company Number: US-ASTRAZENECA-2014SE02248

PATIENT
  Age: 79 Year
  Sex: Male

DRUGS (8)
  1. COKENZEN [Suspect]
     Indication: PRODUCT USED FOR UNKNOWN INDICATION
     Dosage: 16/12.5 MG, 1 DF, DAILY
     Route: 048
     Dates: end: 201311
  2. CELIPROLOL [Concomitant]
     Route: 048
     Dates: end: 201311
  3. CRESTOR [Concomitant]
     Route: 048
     Dates: start: 201208
  4. INEXIUM [Concomitant]
     Route: 048
     Dates: start: 201208, end: 20131104
  5. KARDEGIC [Concomitant]
     Route: 048
  6. OXEOL [Concomitant]
     Route: 048
  7. ZANIDIP [Concomitant]
  8. TEMESTA [Concomitant]
     Route: 048

REACTIONS (5)
  - Dehydration [Recovered/Resolved]
  - Hypochloraemia [Recovered/Resolved]
  - Hypokalaemia [Recovered/Resolved]
  - Hyponatraemia [Recovered/Resolved]
  - Orthostatic hypotension [Unknown]
